FAERS Safety Report 8408210-3 (Version None)
Quarter: 2012Q2

REPORT INFORMATION
  Report Type: 
  Country: None (occurrence: None)
  Receive Date: 20120604
  Receipt Date: 20120524
  Transmission Date: 20120825
  Serious: Yes (Hospitalization, Other)
  Sender: FDA-Public Use
  Company Number: US-ELI_LILLY_AND_COMPANY-US201202006648

PATIENT
  Sex: Male
  Weight: 69.4 kg

DRUGS (21)
  1. ALBUTEROL [Concomitant]
     Dosage: UNK, BID
     Route: 055
  2. SPIRIVA [Concomitant]
     Dosage: 18 UG, QD
     Route: 055
  3. FOLIC ACID [Concomitant]
     Dosage: 1 MG, QD
  4. FORTEO [Suspect]
     Indication: OSTEOPOROSIS
     Dosage: 20 UG, QD
     Route: 058
     Dates: start: 20120201
  5. ASPIRIN [Concomitant]
     Dosage: 81 MG, QD
  6. PLAVIX [Concomitant]
     Dosage: 75 MG, QD
  7. SIMVASTATIN [Concomitant]
     Dosage: 20 MG, EACH EVENING
     Route: 048
  8. VITAMIN D [Concomitant]
     Dosage: 50000 IU, MONTHLY (1/M)
  9. OMEPRAZOLE [Concomitant]
     Dosage: 20 MG, QD
  10. ALPRAZOLAM [Concomitant]
     Dosage: 5 MG, QID
  11. LASIX [Concomitant]
     Dosage: 20 MG, UNK
     Route: 048
  12. AMLODIPINE [Concomitant]
     Dosage: 5 MG, QD
     Route: 048
  13. VITAMIN B-12 [Concomitant]
     Dosage: 1000 UG, MONTHLY (1/M)
     Route: 058
  14. ZOFRAN [Concomitant]
     Dosage: 8 MG, TID
  15. FLUOXETINE [Concomitant]
     Dosage: 20 MG, TID
  16. ALBUTEROL [Concomitant]
     Dosage: 90 UG, QID
  17. PERCOCET [Concomitant]
     Indication: PAIN
     Dosage: UNK, PRN
  18. ADVAIR DISKUS 100/50 [Concomitant]
     Dosage: UNK, OTHER
  19. CITRACAL + D [Concomitant]
     Dosage: UNK, QD
  20. NEURONTIN [Concomitant]
     Dosage: 300 MG, BID
  21. ROBAXIN [Concomitant]
     Dosage: 750 MG, QID

REACTIONS (4)
  - OESOPHAGITIS [None]
  - OESOPHAGEAL STENOSIS [None]
  - PNEUMONIA [None]
  - OESOPHAGITIS ULCERATIVE [None]
